FAERS Safety Report 7755744-0 (Version None)
Quarter: 2011Q3

REPORT INFORMATION
  Report Type: 
  Country: None (occurrence: None)
  Receive Date: 20110916
  Receipt Date: 20110909
  Transmission Date: 20111222
  Serious: Yes (Other)
  Sender: FDA-Public Use
  Company Number: PHEH2011US04110

PATIENT
  Age: 81 Year
  Sex: Male

DRUGS (11)
  1. NIFEDIPINE [Concomitant]
  2. METOPROLOL TARTRATE [Concomitant]
  3. GLUCOSAMINE [Concomitant]
  4. OXYCODONE HCL [Concomitant]
  5. PACERONE [Concomitant]
  6. MAGACE [Concomitant]
  7. LOSARTAN POTASSIUM [Concomitant]
  8. ADVAIR DISKUS 100/50 [Concomitant]
  9. OMEPRAZOLE [Concomitant]
  10. ZOMETA [Suspect]
     Indication: METASTASES TO BONE
     Dosage: 4 MG, Q3
     Route: 042
  11. ALBUTEROL [Concomitant]

REACTIONS (1)
  - OSTEONECROSIS OF JAW [None]
